FAERS Safety Report 7269336-3 (Version None)
Quarter: 2011Q1

REPORT INFORMATION
  Report Type: 
  Country: None (occurrence: None)
  Receive Date: 20110125
  Receipt Date: 20110117
  Transmission Date: 20110831
  Serious: Yes (Hospitalization)
  Sender: FDA-Public Use
  Company Number: 2011SP002123

PATIENT
  Age: 61 Year
  Sex: Male

DRUGS (9)
  1. ESCITALOPRAM OXALATE [Suspect]
     Indication: PRODUCT USED FOR UNKNOWN INDICATION
     Dosage: 10 MG
     Dates: start: 20100416
  2. PANTOPRAZOLE [Concomitant]
  3. DEPAKENE [Suspect]
     Indication: PRODUCT USED FOR UNKNOWN INDICATION
     Dosage: (1000 MG) (1500 MG) (1000 MG)
     Dates: start: 20100421, end: 20100616
  4. DEPAKENE [Suspect]
     Indication: PRODUCT USED FOR UNKNOWN INDICATION
     Dosage: (1000 MG) (1500 MG) (1000 MG)
     Dates: start: 20100616
  5. DEPAKENE [Suspect]
     Indication: PRODUCT USED FOR UNKNOWN INDICATION
     Dosage: (1000 MG) (1500 MG) (1000 MG)
     Dates: start: 20100401, end: 20100414
  6. DEPAKENE [Suspect]
     Indication: PRODUCT USED FOR UNKNOWN INDICATION
     Dosage: (1000 MG) (1500 MG) (1000 MG)
     Dates: start: 20100415, end: 20100420
  7. CIPROXINE [Concomitant]
  8. REMERON [Suspect]
     Indication: PRODUCT USED FOR UNKNOWN INDICATION
     Dosage: 15 MG
     Dates: start: 20100401, end: 20100430
  9. TAMSULOSIN HCL [Concomitant]

REACTIONS (5)
  - VENOUS INSUFFICIENCY [None]
  - FATIGUE [None]
  - IMMOBILE [None]
  - DEEP VEIN THROMBOSIS [None]
  - CARDIOVASCULAR DISORDER [None]
